FAERS Safety Report 15494905 (Version 4)
Quarter: 2018Q4

REPORT INFORMATION
  Report Type: Report from Study
  Country: None (occurrence: ES)
  Receive Date: 20181012
  Receipt Date: 20181108
  Transmission Date: 20190205
  Serious: Yes (Hospitalization, Other)
  Sender: FDA-Public Use
  Company Number: ES-ABBVIE-18S-144-2514327-00

PATIENT
  Age: 71 Year
  Sex: Male

DRUGS (1)
  1. DUODOPA [Suspect]
     Active Substance: CARBIDOPA\LEVODOPA
     Indication: PARKINSON^S DISEASE
     Route: 050
     Dates: start: 20150611

REACTIONS (12)
  - Haemorrhage urinary tract [Recovered/Resolved]
  - Depressed mood [Unknown]
  - Hallucination [Recovered/Resolved]
  - Peritoneal fibrosis [Unknown]
  - Catheter site phlebitis [Unknown]
  - General physical health deterioration [Unknown]
  - Freezing phenomenon [Recovering/Resolving]
  - Haemorrhage urinary tract [Recovered/Resolved]
  - Pyrexia [Recovered/Resolved]
  - Device issue [Not Recovered/Not Resolved]
  - Insomnia [Unknown]
  - On and off phenomenon [Unknown]

NARRATIVE: CASE EVENT DATE: 201810
